FAERS Safety Report 5343203-4 (Version None)
Quarter: 2007Q2

REPORT INFORMATION
  Report Type: 
  Country: None (occurrence: None)
  Receive Date: 20070416
  Receipt Date: 20070216
  Transmission Date: 20071010
  Serious: No
  Sender: FDA-Public Use
  Company Number: 2007US000501

PATIENT
  Sex: Female

DRUGS (2)
  1. MYCAMINE [Suspect]
     Indication: ASPERGILLOSIS
     Dosage: SEE IMAGE
  2. VORICONAZOLE (VORICONAZOLE) [Concomitant]

REACTIONS (1)
  - OEDEMA PERIPHERAL [None]
